FAERS Safety Report 7750147-7 (Version None)
Quarter: 2011Q3

REPORT INFORMATION
  Report Type: 
  Country: None (occurrence: None)
  Receive Date: 20110914
  Receipt Date: 20110912
  Transmission Date: 20111222
  Serious: Yes (Other)
  Sender: FDA-Public Use
  Company Number: JP-PFIZER INC-2011214559

PATIENT
  Age: 75 Year
  Sex: Male

DRUGS (3)
  1. NEOPHYLLIN [Concomitant]
  2. THEOPHYLLINE [Concomitant]
  3. SOLU-CORTEF [Suspect]
     Dosage: 300 MG, 1X/DAY
     Route: 042

REACTIONS (1)
  - HALLUCINATION [None]
